FAERS Safety Report 10025132 (Version 1)
Quarter: 2014Q1

REPORT INFORMATION
  Report Type: Spontaneous
  Country: US (occurrence: None)
  Receive Date: 20140212
  Receipt Date: 20140212
  Transmission Date: 20141002
  Serious: Yes (Hospitalization, Other)
  Sender: FDA-Public Use
  Company Number: 14-00287

PATIENT
  Age: 50 Year
  Sex: Female

DRUGS (5)
  1. ALBUTEROL SULFATE [Suspect]
     Indication: CHRONIC OBSTRUCTIVE PULMONARY DISEASE
     Dosage: 1 VIAL TID 054
  2. MULTIPLE MEDICATIONS FOR BACK AND NECK PAIN [Concomitant]
  3. ADVAIR (SALMETEROL/FLUTICASONE) [Concomitant]
  4. VENTOLIN (ALBUTEROL) [Concomitant]
  5. LISINOPRIL [Concomitant]

REACTIONS (4)
  - Respiratory failure [None]
  - Drug ineffective [None]
  - Lung infection [None]
  - Nasopharyngitis [None]
